FAERS Safety Report 5142895-2 (Version None)
Quarter: 2006Q4

REPORT INFORMATION
  Report Type: 
  Country: None (occurrence: None)
  Receive Date: 20061030
  Receipt Date: 20061016
  Transmission Date: 20070319
  Serious: Yes (Hospitalization)
  Sender: FDA-Public Use
  Company Number: 2006126651

PATIENT
  Age: 72 Year
  Sex: Male

DRUGS (6)
  1. AMLODIPINE [Suspect]
     Dosage: ORAL
     Route: 048
  2. FUROSEMIDE [Suspect]
     Dosage: ORAL
     Route: 048
  3. RAMIPRIL [Suspect]
     Dosage: ORAL
     Route: 048
     Dates: end: 20060822
  4. DIAMICRON (GLICLAZIDE) [Concomitant]
  5. ATENOLOL [Concomitant]
  6. METFORMIN HCL [Concomitant]

REACTIONS (6)
  - DERMATOSIS [None]
  - ICHTHYOSIS [None]
  - IMPETIGO [None]
  - PAIN IN EXTREMITY [None]
  - PHOTOSENSITIVITY REACTION [None]
  - SKIN EXFOLIATION [None]
